FAERS Safety Report 11296859 (Version 1)
Quarter: 2015Q3

REPORT INFORMATION
  Report Type: Spontaneous
  Country: US (occurrence: US)
  Receive Date: 20150722
  Receipt Date: 20150722
  Transmission Date: 20151125
  Serious: Yes (Life-Threatening, Hospitalization, Disabling, Other)
  Sender: FDA-Public Use
  Company Number: US-ELI_LILLY_AND_COMPANY-US201010005592

PATIENT
  Age: 59 Year
  Sex: Female
  Weight: 78.46 kg

DRUGS (2)
  1. PROTON PUMP INHIBITORS [Concomitant]
     Active Substance: UNSPECIFIED INGREDIENT
  2. EFFIENT [Suspect]
     Active Substance: PRASUGREL HYDROCHLORIDE
     Indication: CORONARY ARTERIAL STENT INSERTION
     Dosage: 10 MG, DAILY (1/D)
     Route: 048
     Dates: start: 20100305, end: 20100322

REACTIONS (2)
  - Large intestinal haemorrhage [Unknown]
  - Rectal haemorrhage [Unknown]
